FAERS Safety Report 18523411 (Version 6)
Quarter: 2020Q4

REPORT INFORMATION
  Report Type: Spontaneous
  Country: US (occurrence: US)
  Receive Date: 20201119
  Receipt Date: 20201229
  Transmission Date: 20210114
  Serious: No
  Sender: FDA-Public Use
  Company Number: US-PFIZER INC-2020450883

PATIENT
  Age: 56 Year
  Sex: Female
  Weight: 56.7 kg

DRUGS (2)
  1. XELJANZ XR [Suspect]
     Active Substance: TOFACITINIB CITRATE
     Indication: PSORIATIC ARTHROPATHY
  2. XELJANZ XR [Suspect]
     Active Substance: TOFACITINIB CITRATE
     Indication: DERMATITIS EXFOLIATIVE GENERALISED
     Dosage: 11 MG, DAILY
     Route: 048
     Dates: start: 202008, end: 2020

REACTIONS (2)
  - Nervousness [Unknown]
  - Weight increased [Unknown]

NARRATIVE: CASE EVENT DATE: 2020
